FAERS Safety Report 15430577 (Version 1)
Quarter: 2018Q3

REPORT INFORMATION
  Report Type: Spontaneous
  Country: US (occurrence: US)
  Receive Date: 20180921
  Receipt Date: 20180921
  Transmission Date: 20181010
  Serious: Yes (Life-Threatening, Hospitalization)
  Sender: FDA-Public Use
  Company Number: None

PATIENT
  Age: 74 Year
  Sex: Male
  Weight: 64.3 kg

DRUGS (1)
  1. OPDIVO [Suspect]
     Active Substance: NIVOLUMAB
     Indication: OROPHARYNGEAL SQUAMOUS CELL CARCINOMA
     Dosage: ?          OTHER FREQUENCY:EVERY 28 DAYS;?
     Route: 040
     Dates: start: 20180213, end: 20180731

REACTIONS (2)
  - Acute respiratory failure [None]
  - Interstitial lung disease [None]

NARRATIVE: CASE EVENT DATE: 20180826
